FAERS Safety Report 9159394 (Version 1)
Quarter: 2013Q1

REPORT INFORMATION
  Report Type: Spontaneous
  Country: US (occurrence: None)
  Receive Date: 20130312
  Receipt Date: 20130312
  Transmission Date: 20140127
  Serious: Yes (Other)
  Sender: FDA-Public Use
  Company Number: None

PATIENT
  Age: 66 Year
  Sex: Male
  Weight: 102.06 kg

DRUGS (11)
  1. LEVEMIR [Suspect]
     Dates: start: 20121206, end: 20130302
  2. ADDERAL XR [Concomitant]
  3. ATACAND [Concomitant]
  4. VASOTEC [Concomitant]
  5. GLUCOTROL [Concomitant]
  6. HYDRODIURIL [Suspect]
  7. GLUCOPHAGE [Concomitant]
  8. SINGULAIR [Concomitant]
  9. PROPRANOLOL HCL [Concomitant]
  10. ZOCOR [Concomitant]
  11. JANUVIA [Concomitant]

REACTIONS (5)
  - Swelling [None]
  - Erythema [None]
  - Pruritus [None]
  - Hypersensitivity [None]
  - Reaction to drug excipients [None]
